FAERS Safety Report 5145292-9 (Version None)
Quarter: 2006Q4

REPORT INFORMATION
  Report Type: 
  Country: None (occurrence: None)
  Receive Date: 20061101
  Receipt Date: 20061017
  Transmission Date: 20070319
  Serious: Yes (Other)
  Sender: FDA-Public Use
  Company Number: 14997

PATIENT
  Age: 43 Year
  Sex: Female

DRUGS (6)
  1. FLUOROURACIL [Suspect]
     Indication: BREAST CANCER
  2. MITOMYCIN [Suspect]
     Indication: BREAST CANCER
  3. TAMOXIFEN CITRATE [Suspect]
     Indication: BREAST CANCER
  4. CYCLOPHOSPHAMIDE [Suspect]
     Indication: BREAST CANCER
  5. 5-HT3 [Concomitant]
  6. METOCLOPRAMIDE [Concomitant]

REACTIONS (3)
  - ARTHROPATHY [None]
  - MUSCULOSKELETAL STIFFNESS [None]
  - RHEUMATOID FACTOR POSITIVE [None]
